FAERS Safety Report 8671314 (Version 2)
Quarter: 2012Q4

REPORT INFORMATION
  Report Type: Report from Study
  Country: HU (occurrence: HU)
  Receive Date: 20120718
  Receipt Date: 20121015
  Transmission Date: 20130627
  Serious: Yes (Death)
  Sender: FDA-Public Use
  Company Number: PHHY2012HU061117

PATIENT
  Age: 75 Year
  Sex: Female

DRUGS (1)
  1. CGS 20267 [Suspect]
     Indication: BREAST CANCER
     Dosage: 2.5 mg, daily
     Dates: start: 200806

REACTIONS (1)
  - Death [Fatal]
